FAERS Safety Report 4413463-2 (Version None)
Quarter: 2004Q3

REPORT INFORMATION
  Report Type: 
  Country: None (occurrence: None)
  Receive Date: 20040727
  Receipt Date: 20040712
  Transmission Date: 20050211
  Serious: Yes (Death)
  Sender: FDA-Public Use
  Company Number: USA-2002-0003397

PATIENT
  Age: 48 Year
  Sex: Female

DRUGS (8)
  1. MS CONTIN [Suspect]
     Indication: PAIN
     Dosage: 3 MG, Q12H, ORAL
     Route: 048
  2. NEURONTIN [Concomitant]
  3. LORTAB [Concomitant]
  4. ZANAFLEX [Concomitant]
  5. LOTENSIN [Concomitant]
  6. BEXTRA [Concomitant]
  7. ZOCOR [Concomitant]
  8. PAXIL [Concomitant]

REACTIONS (2)
  - CORONARY ARTERY ATHEROSCLEROSIS [None]
  - OBESITY [None]
